FAERS Safety Report 6366735-9 (Version None)
Quarter: 2009Q3

REPORT INFORMATION
  Report Type: 
  Country: None (occurrence: None)
  Receive Date: 20090915
  Receipt Date: 20090909
  Transmission Date: 20100115
  Serious: Yes (Hospitalization)
  Sender: FDA-Public Use
  Company Number: 2009SP024360

PATIENT
  Age: 51 Year
  Sex: Male
  Weight: 85 kg

DRUGS (2)
  1. PEGINTERFERON ALFA-2B (S-P) (PEGINTERFERON ALFA-2B) (100 MG) [Suspect]
     Indication: HEPATITIS C VIRUS TEST
     Dosage: 65 ML, SC
     Route: 058
     Dates: start: 20070802, end: 20080703
  2. RIBAVIRIN [Suspect]
     Indication: HEPATITIS C VIRUS TEST
     Dosage: 5
     Dates: start: 20070802, end: 20080703

REACTIONS (1)
  - APPENDICITIS [None]
